FAERS Safety Report 12172716 (Version 1)
Quarter: 2016Q1

REPORT INFORMATION
  Report Type: Spontaneous
  Country: US (occurrence: US)
  Receive Date: 20160311
  Receipt Date: 20160311
  Transmission Date: 20160526
  Serious: Yes (Other)
  Sender: FDA-Public Use
  Company Number: US-AMNEAL PHARMACEUTICALS-2016AMN00147

PATIENT
  Age: 52 Year
  Sex: Female
  Weight: 60.77 kg

DRUGS (1)
  1. ACEBUTOLOL HYDROCHLORIDE. [Suspect]
     Active Substance: ACEBUTOLOL HYDROCHLORIDE
     Indication: ARRHYTHMIA
     Dosage: 200 MG, 2X/DAY
     Route: 048
     Dates: start: 20160301

REACTIONS (1)
  - Cardiac flutter [Not Recovered/Not Resolved]

NARRATIVE: CASE EVENT DATE: 20160301
